FAERS Safety Report 8072357-4 (Version None)
Quarter: 2012Q1

REPORT INFORMATION
  Report Type: 
  Country: None (occurrence: None)
  Receive Date: 20120126
  Receipt Date: 20120117
  Transmission Date: 20120608
  Serious: Yes (Hospitalization, Other)
  Sender: FDA-Public Use
  Company Number: US-BAYER-2011-063043

PATIENT
  Age: 16 Year
  Sex: Female
  Weight: 53.061 kg

DRUGS (12)
  1. YAZ [Suspect]
     Indication: PREMENSTRUAL SYNDROME
     Dosage: UNK
     Dates: start: 20070301, end: 20070501
  2. YAZ [Suspect]
     Dosage: UNK
     Dates: start: 20070801, end: 20080401
  3. NAPROXEN (ALEVE) [Concomitant]
     Indication: PAIN MANAGEMENT
  4. MULTI-VITAMIN [Concomitant]
     Dosage: UNK
     Dates: start: 20080315, end: 20080404
  5. SINGULAIR [Concomitant]
     Indication: ASTHMA
     Dosage: UNK
     Dates: start: 20080315, end: 20080404
  6. ALBUTEROL [Concomitant]
     Indication: ASTHMA
     Dosage: UNK
     Dates: start: 20000101, end: 20090101
  7. ACETAMINOPHEN [Concomitant]
     Indication: PAIN MANAGEMENT
  8. TOBRADEX [Concomitant]
     Indication: CONJUNCTIVITIS INFECTIVE
  9. VITAMIN E [Concomitant]
     Dosage: UNK
     Dates: start: 20080315, end: 20080404
  10. SINGULAIR [Concomitant]
     Dosage: UNK
     Dates: start: 20081122, end: 20081212
  11. YAZ [Suspect]
     Dosage: UNK
     Dates: start: 20090401, end: 20091201
  12. ADVAIR DISKUS 100/50 [Concomitant]
     Dosage: UNK
     Dates: start: 20081122, end: 20081212

REACTIONS (5)
  - CHOLECYSTITIS [None]
  - INJURY [None]
  - PANCREATITIS [None]
  - GALLBLADDER DISORDER [None]
  - PAIN [None]
